FAERS Safety Report 6810819-5 (Version None)
Quarter: 2010Q2

REPORT INFORMATION
  Report Type: 
  Country: None (occurrence: None)
  Receive Date: 20100630
  Receipt Date: 20080209
  Transmission Date: 20101027
  Serious: No
  Sender: FDA-Public Use
  Company Number: US-PFIZER INC-2007106315

PATIENT
  Sex: Female
  Weight: 59.87 kg

DRUGS (5)
  1. ESTRING [Suspect]
     Indication: SENILE GENITAL ATROPHY
  2. TRICOR [Concomitant]
  3. SYNTHROID [Concomitant]
  4. LITHIUM [Concomitant]
  5. ESTRACE [Concomitant]

REACTIONS (4)
  - VULVAL DISORDER [None]
  - VULVOVAGINAL BURNING SENSATION [None]
  - VULVOVAGINAL DISCOMFORT [None]
  - VULVOVAGINAL PRURITUS [None]
